FAERS Safety Report 7328731-4 (Version None)
Quarter: 2011Q1

REPORT INFORMATION
  Report Type: 
  Country: None (occurrence: None)
  Receive Date: 20110225
  Receipt Date: 20110225
  Transmission Date: 20110831
  Serious: Yes (Other)
  Sender: FDA-Public Use
  Company Number: None

PATIENT
  Age: 50 Year
  Sex: Male
  Weight: 92.9874 kg

DRUGS (2)
  1. CYMBALTA [Suspect]
     Indication: ANXIETY
     Dosage: 30MG 0NCE A DAY PO
     Route: 048
     Dates: start: 20080615, end: 20110214
  2. CYMBALTA [Suspect]
     Indication: DEPRESSION
     Dosage: 30MG 0NCE A DAY PO
     Route: 048
     Dates: start: 20080615, end: 20110214

REACTIONS (1)
  - DRUG WITHDRAWAL SYNDROME [None]
